FAERS Safety Report 24255175 (Version 1)
Quarter: 2024Q3

REPORT INFORMATION
  Report Type: Spontaneous
  Country: US (occurrence: None)
  Receive Date: 20240827
  Receipt Date: 20240827
  Transmission Date: 20241016
  Serious: Yes (Hospitalization)
  Sender: Public
  Company Number: None

PATIENT
  Sex: Female
  Weight: 306 kg

DRUGS (7)
  1. CYCLOPHOSPHAMIDE [Suspect]
     Active Substance: CYCLOPHOSPHAMIDE
  2. CYTARABINE [Concomitant]
     Active Substance: CYTARABINE
  3. SPRYCEL [Concomitant]
     Active Substance: DASATINIB
  4. DEXAMETHASONE [Concomitant]
     Active Substance: DEXAMETHASONE
  5. DOXORUBICIN HYDROCHLORIDE [Concomitant]
     Active Substance: DOXORUBICIN HYDROCHLORIDE
  6. METHOTREXATE [Concomitant]
     Active Substance: METHOTREXATE
  7. VINCRISTINE SULFATE [Concomitant]
     Active Substance: VINCRISTINE SULFATE

REACTIONS (12)
  - Neutrophil count decreased [None]
  - Lymphocyte count decreased [None]
  - Febrile neutropenia [None]
  - Anaemia [None]
  - Platelet count decreased [None]
  - White blood cell count decreased [None]
  - Malaise [None]
  - Fatigue [None]
  - Oropharyngeal pain [None]
  - Dyspnoea exertional [None]
  - Herpes simplex [None]
  - Anorectal disorder [None]

NARRATIVE: CASE EVENT DATE: 20230511
